FAERS Safety Report 7739943 (Version 2)
Quarter: 2013Q3

REPORT INFORMATION
  Report Type: Spontaneous
  Country: FR (occurrence: None)
  Receive Date: 20101124
  Receipt Date: 20130702
  Transmission Date: 20140515
  Serious: Yes (Death)
  Sender: FDA-Public Use
  Company Number: UTC-002143

PATIENT
  Age: 10 Year
  Sex: Female

DRUGS (3)
  1. REMODULIN [Suspect]
     Indication: PULMONARY ARTERIAL HYPERTENSION
     Dosage: (1 IN 1 MIN), SUBCUTANEOUS
     Route: 058
  2. BOSENTAN (BOSENTAN) [Concomitant]
  3. SILDENAFIL CITRATE [Concomitant]

REACTIONS (2)
  - Right ventricular failure [None]
  - Refusal of treatment by relative [None]
